FAERS Safety Report 16945031 (Version 2)
Quarter: 2022Q4

REPORT INFORMATION
  Report Type: Report from Study
  Country: JP (occurrence: JP)
  Receive Date: 20191022
  Receipt Date: 20221111
  Transmission Date: 20230113
  Serious: Yes (Death, Other)
  Sender: FDA-Public Use
  Company Number: JP-PFIZER INC-2019383018

PATIENT
  Age: 44 Year
  Sex: Female
  Weight: 49.3 kg

DRUGS (1)
  1. BESPONSA [Suspect]
     Active Substance: INOTUZUMAB OZOGAMICIN
     Indication: Acute lymphocytic leukaemia recurrent
     Dosage: 0.8 MG/M2, 1X/DAY, CYCLE 1, SINGLE
     Route: 042
     Dates: start: 20190704, end: 20190704

REACTIONS (2)
  - Multiple organ dysfunction syndrome [Fatal]
  - Venoocclusive liver disease [Recovering/Resolving]

NARRATIVE: CASE EVENT DATE: 20190806
